FAERS Safety Report 12134437 (Version 2)
Quarter: 2016Q1

REPORT INFORMATION
  Report Type: Spontaneous
  Country: US (occurrence: US)
  Receive Date: 20160301
  Receipt Date: 20160310
  Transmission Date: 20160526
  Serious: Yes (Death)
  Sender: FDA-Public Use
  Company Number: US-UNITED THERAPEUTICS-UNT-2016-003046

PATIENT
  Sex: Female
  Weight: 118.37 kg

DRUGS (1)
  1. TYVASO [Suspect]
     Active Substance: TREPROSTINIL
     Indication: PULMONARY ARTERIAL HYPERTENSION
     Dosage: 18-54 ?G, QID
     Dates: start: 20130514

REACTIONS (4)
  - Obesity [Fatal]
  - Pulmonary arterial hypertension [Fatal]
  - Interstitial lung disease [Fatal]
  - Cardiac failure congestive [Fatal]
